FAERS Safety Report 12159307 (Version 1)
Quarter: 2016Q1

REPORT INFORMATION
  Report Type: Spontaneous
  Country: US (occurrence: US)
  Receive Date: 20160308
  Receipt Date: 20160308
  Transmission Date: 20160526
  Serious: No
  Sender: FDA-Public Use
  Company Number: US-PFIZER INC-2016009378

PATIENT
  Age: 69 Year
  Sex: Female
  Weight: 97.52 kg

DRUGS (5)
  1. SYNTHROID [Concomitant]
     Active Substance: LEVOTHYROXINE SODIUM
     Indication: THYROIDECTOMY
     Dosage: UNK
  2. ALAVERT ALLERGY [Suspect]
     Active Substance: LORATADINE
     Indication: HYPERSENSITIVITY
     Dosage: UNK UNK, 1X/DAY (ONCE A DAY, BY MOUTH)
     Route: 048
     Dates: start: 201512
  3. IBUPROFEN. [Concomitant]
     Active Substance: IBUPROFEN
     Indication: MUSCULOSKELETAL DISCOMFORT
     Dosage: 200 MG, AS NEEDED
  4. ALPRAZOLAM. [Concomitant]
     Active Substance: ALPRAZOLAM
     Indication: ANXIETY
     Dosage: WHOLE OR HALF, AS NEEDED
  5. ANASTROZOLE. [Concomitant]
     Active Substance: ANASTROZOLE
     Indication: BREAST CANCER
     Dosage: 1 MG, DAILY

REACTIONS (5)
  - Eye pruritus [Recovering/Resolving]
  - Vision blurred [Unknown]
  - Drug ineffective [Unknown]
  - Rhinorrhoea [Recovering/Resolving]
  - Intranasal paraesthesia [Unknown]

NARRATIVE: CASE EVENT DATE: 201512
